FAERS Safety Report 7213587-0 (Version None)
Quarter: 2010Q4

REPORT INFORMATION
  Report Type: 
  Country: None (occurrence: None)
  Receive Date: 20101126
  Receipt Date: 20080331
  Transmission Date: 20110411
  Serious: Yes (Other)
  Sender: FDA-Public Use
  Company Number: CIP06001948

PATIENT
  Age: 53 Year
  Sex: Female

DRUGS (32)
  1. ACTONEL [Suspect]
     Dosage: 5 MG, DAILY, ORAL
     Route: 048
     Dates: start: 20010305, end: 20030618
  2. FOSAMAX [Suspect]
     Dosage: 10 MG, ORAL
     Route: 048
     Dates: start: 19970122, end: 20001101
  3. ESTRATAB [Concomitant]
  4. MEDROXYPROGESTERONE ACETATE [Concomitant]
  5. COUMADIN [Concomitant]
  6. ASTELIN /00884002/ (AZELASTINE HYDROCHLORIDE) [Concomitant]
  7. NASONEX [Concomitant]
  8. NIASPAN [Concomitant]
  9. BACTROBAN [Concomitant]
  10. MYCELEX [Concomitant]
  11. ATROVENT [Concomitant]
  12. LEVAQUIN [Concomitant]
  13. ZITHROMAX [Concomitant]
  14. DIFLUCAN [Concomitant]
  15. HYDROCODONE BITARTRATE [Concomitant]
  16. KLONOPIN [Concomitant]
  17. AMOXICILLIN [Concomitant]
  18. EFFEXOR [Concomitant]
  19. BAYCOL [Concomitant]
  20. SULFACETAMIDE SODIUM [Concomitant]
  21. NORTRIPTYLINE HCL [Concomitant]
  22. CELEBREX [Concomitant]
  23. LORABID [Concomitant]
  24. VIVELLE-DOT [Concomitant]
  25. GYNAZOLE (BUTOCONAZOLE NITRATE) [Concomitant]
  26. DENTA 5000 PLUS (SODIUM FLUORIDE) [Concomitant]
  27. PREDNISONE TAB [Concomitant]
  28. DESOXIMETASONE (DESOXIMETASONE) [Concomitant]
  29. PROMETRIUM [Concomitant]
  30. AUGMENTIN /00756801/ (AMOXICILLIN SODIUM, CLAVULANATE POTASSIUM) [Concomitant]
  31. LYRICA [Concomitant]
  32. ZOLPIDEM [Concomitant]

REACTIONS (23)
  - BRUXISM [None]
  - GINGIVAL RECESSION [None]
  - GINGIVITIS [None]
  - HALLUCINATION [None]
  - INSOMNIA [None]
  - JOINT CREPITATION [None]
  - MALOCCLUSION [None]
  - MIGRAINE [None]
  - NEURITIS [None]
  - ODONTOGENIC CYST [None]
  - ORAL PAIN [None]
  - OROANTRAL FISTULA [None]
  - OSTEOMYELITIS [None]
  - OSTEONECROSIS OF JAW [None]
  - PAIN IN JAW [None]
  - PALATAL DISORDER [None]
  - PSYCHOMOTOR HYPERACTIVITY [None]
  - SALIVARY HYPERSECRETION [None]
  - SINUSITIS FUNGAL [None]
  - SPEECH DISORDER [None]
  - TEMPOROMANDIBULAR JOINT SYNDROME [None]
  - TONGUE BLISTERING [None]
  - TOOTHACHE [None]
